FAERS Safety Report 8021081-2 (Version None)
Quarter: 2011Q4

REPORT INFORMATION
  Report Type: 
  Country: None (occurrence: None)
  Receive Date: 20111229
  Receipt Date: 20111229
  Transmission Date: 20120403
  Serious: Yes (Other)
  Sender: FDA-Public Use
  Company Number: None

PATIENT
  Sex: Male
  Weight: 106.5953 kg

DRUGS (2)
  1. LEVETIRACETAM [Suspect]
     Indication: GRAND MAL CONVULSION
     Dosage: 500MG TWICE DAILY PILL W/ WATER
     Dates: start: 20090801
  2. LEVETIRACETAM [Suspect]

REACTIONS (8)
  - OROPHARYNGEAL PAIN [None]
  - ASTHENIA [None]
  - IMMUNE SYSTEM DISORDER [None]
  - PRODUCT SUBSTITUTION ISSUE [None]
  - CONVULSION [None]
  - SLUGGISHNESS [None]
  - MIDDLE INSOMNIA [None]
  - PRODUCT COUNTERFEIT [None]
